FAERS Safety Report 17570051 (Version 1)
Quarter: 2020Q1

REPORT INFORMATION
  Report Type: Spontaneous
  Country: IT (occurrence: IT)
  Receive Date: 20200323
  Receipt Date: 20200323
  Transmission Date: 20200409
  Serious: Yes (Other)
  Sender: FDA-Public Use
  Company Number: IT-AUROBINDO-AUR-APL-2020-014868

PATIENT
  Age: 85 Year
  Sex: Female

DRUGS (1)
  1. CLOPIDOGREL [Suspect]
     Active Substance: CLOPIDOGREL BISULFATE
     Indication: VENOUS THROMBOSIS
     Dosage: 75 MILLIGRAM, ONCE A DAY
     Route: 048
     Dates: start: 20200206

REACTIONS (3)
  - Anaemia [Recovering/Resolving]
  - Ecchymosis [Recovering/Resolving]
  - Haematoma muscle [Recovering/Resolving]

NARRATIVE: CASE EVENT DATE: 20200206
